FAERS Safety Report 12819600 (Version 1)
Quarter: 2016Q4

REPORT INFORMATION
  Report Type: Report from Study
  Country: US (occurrence: US)
  Receive Date: 20161006
  Receipt Date: 20161006
  Transmission Date: 20170207
  Serious: No
  Sender: FDA-Public Use
  Company Number: US-AMGEN-USASL2016012049

PATIENT
  Age: 77 Year
  Sex: Female

DRUGS (1)
  1. PROLIA [Suspect]
     Active Substance: DENOSUMAB
     Indication: PRODUCT USED FOR UNKNOWN INDICATION
     Dosage: UNK
     Route: 065

REACTIONS (9)
  - Ear pain [Not Recovered/Not Resolved]
  - Lip ulceration [Unknown]
  - Gingival disorder [Unknown]
  - Pain in jaw [Unknown]
  - Joint stiffness [Not Recovered/Not Resolved]
  - Denture wearer [Unknown]
  - Cystitis [Not Recovered/Not Resolved]
  - Gingival pain [Unknown]
  - Oral pain [Unknown]
